FAERS Safety Report 6046492-6 (Version None)
Quarter: 2009Q1

REPORT INFORMATION
  Report Type: 
  Country: None (occurrence: None)
  Receive Date: 20090122
  Receipt Date: 20081222
  Transmission Date: 20090719
  Serious: No
  Sender: FDA-Public Use
  Company Number: US-BAYER-200841624NA

PATIENT
  Sex: Female

DRUGS (2)
  1. YAZ [Suspect]
     Indication: CONTRACEPTION
     Route: 048
     Dates: start: 20081125
  2. MIRENA [Suspect]
     Route: 015
     Dates: start: 20081111, end: 20081125

REACTIONS (2)
  - ABNORMAL WITHDRAWAL BLEEDING [None]
  - POST PROCEDURAL HAEMORRHAGE [None]
